FAERS Safety Report 15090185 (Version 1)
Quarter: 2018Q2

REPORT INFORMATION
  Report Type: Spontaneous
  Country: BR (occurrence: BR)
  Receive Date: 20180629
  Receipt Date: 20180629
  Transmission Date: 20180711
  Serious: Yes (Other)
  Sender: FDA-Public Use
  Company Number: BR-FERRINGPH-2016FE05528

PATIENT

DRUGS (13)
  1. TIMOLOL. [Concomitant]
     Active Substance: TIMOLOL
  2. LEXAPRO [Concomitant]
     Active Substance: ESCITALOPRAM OXALATE
     Indication: DEPRESSION
     Dosage: 10 MG, DAILY
     Route: 048
  3. FIRMAGON [Suspect]
     Active Substance: DEGARELIX ACETATE
     Indication: PROSTATE CANCER
     Dosage: 80 MG, MONTHLY
     Route: 065
     Dates: start: 20160721
  4. DOXAZOSIN MESYLATE. [Concomitant]
     Active Substance: DOXAZOSIN MESYLATE
     Indication: PROSTATE CANCER
     Dosage: 4 MG, DAILY
     Route: 048
  5. MESACOL                            /00747601/ [Concomitant]
     Active Substance: MESALAMINE
     Indication: PROCTITIS
     Dosage: UNK
     Route: 048
  6. ZOLADEX [Concomitant]
     Active Substance: GOSERELIN ACETATE
     Indication: PROSTATE CANCER
     Dosage: 360 MG, UNK
     Route: 058
     Dates: start: 200910
  7. LOSARTAN. [Concomitant]
     Active Substance: LOSARTAN
     Indication: HYPERTENSION
     Dosage: 100 MG, DAILY
     Route: 048
     Dates: start: 201606
  8. DIAZEPAM. [Concomitant]
     Active Substance: DIAZEPAM
     Indication: ANXIOLYTIC THERAPY
     Dosage: 3 MG, DAILY
     Route: 048
  9. SINVASTACOR [Concomitant]
     Active Substance: SIMVASTATIN
     Indication: HYPERCHOLESTEROLAEMIA
     Dosage: 10 MG, DAILY
     Route: 048
  10. XALACOM [Concomitant]
     Active Substance: LATANOPROST\TIMOLOL MALEATE
     Indication: OCULAR DISCOMFORT
  11. FIRMAGON [Suspect]
     Active Substance: DEGARELIX ACETATE
     Dosage: 240 MG, ONCE/SINGLE
     Route: 065
     Dates: start: 20160623
  12. CONDROFLEX [Concomitant]
     Active Substance: CHONDROITIN SULFATE (BOVINE)\GLUCOSAMINE SULFATE
     Indication: OSTEOARTHRITIS
     Route: 048
  13. XALACOM [Concomitant]
     Active Substance: LATANOPROST\TIMOLOL MALEATE
     Indication: GLAUCOMA
     Dosage: UNK
     Route: 031
     Dates: start: 2014

REACTIONS (22)
  - Spinal pain [Not Recovered/Not Resolved]
  - Feeling hot [Unknown]
  - Dyspnoea [Unknown]
  - Eyelid disorder [Unknown]
  - Headache [Unknown]
  - Cardiac disorder [Unknown]
  - Confusional state [Unknown]
  - Metastases to bone [Unknown]
  - Fatigue [Not Recovered/Not Resolved]
  - Asthenia [Not Recovered/Not Resolved]
  - Hot flush [Unknown]
  - Sinusitis [Unknown]
  - Cough [Unknown]
  - Emphysema [Not Recovered/Not Resolved]
  - Confusional state [Unknown]
  - Depression [Unknown]
  - Hyporeflexia [Unknown]
  - Pyrexia [Unknown]
  - Hyperhidrosis [Recovered/Resolved]
  - Dementia Alzheimer^s type [Not Recovered/Not Resolved]
  - Influenza [Unknown]
  - Vertigo [Unknown]

NARRATIVE: CASE EVENT DATE: 20160806
